FAERS Safety Report 9499643 (Version 1)
Quarter: 2013Q3

REPORT INFORMATION
  Report Type: Spontaneous
  Country: US (occurrence: None)
  Receive Date: 20130903
  Receipt Date: 20130903
  Transmission Date: 20140515
  Serious: No
  Sender: FDA-Public Use
  Company Number: None

PATIENT
  Age: 10 Year
  Sex: Female

DRUGS (1)
  1. CONCERTA [Suspect]
     Dosage: #30 QD PO
     Route: 048

REACTIONS (2)
  - Product substitution issue [None]
  - Drug ineffective [None]
